FAERS Safety Report 7737817-1 (Version None)
Quarter: 2011Q3

REPORT INFORMATION
  Report Type: 
  Country: None (occurrence: None)
  Receive Date: 20110908
  Receipt Date: 20110825
  Transmission Date: 20111222
  Serious: Yes (Other)
  Sender: FDA-Public Use
  Company Number: PHHY2011BR47717

PATIENT
  Sex: Female

DRUGS (17)
  1. ALPRAZOLAM [Concomitant]
     Dosage: 2 MG, UNK
  2. FORMOTEROL FUMARATE [Suspect]
     Indication: LUNG DISORDER
     Dosage: 1 DF, BID
     Route: 048
  3. MODURETIC 5-50 [Concomitant]
     Dosage: 1 DF, UNK
  4. VASTAREL [Concomitant]
     Dosage: 35 MG, UNK
  5. FIXICAL [Concomitant]
     Dosage: 600 MG, UNK
  6. MONONITRAT [Concomitant]
     Dosage: 40 MG, UNK
  7. CITROIDE [Concomitant]
     Dosage: 25 MG, UNK
  8. GELOK [Concomitant]
     Dosage: 25 MG, UNK
  9. CLOPIDOGREL [Concomitant]
     Dosage: 75 MG, UNK
  10. DECADENIA [Concomitant]
     Dosage: 250 MG, UNK
  11. IVABRADINE HYDROCHLORIDE [Concomitant]
     Dosage: 5 MG, UNK
  12. LIPITOR [Concomitant]
     Dosage: 20 MG, UNK
  13. CITALOPRAM HYDROBROMIDE [Concomitant]
     Dosage: 20 MG, UNK
  14. EXFORGE [Suspect]
     Indication: HYPERTENSION
     Dosage: 1 DF, BID
     Route: 048
  15. ISORDIL [Concomitant]
     Dosage: 5 MG, UNK
  16. APRESOLINE [Suspect]
     Indication: CARDIAC DISORDER
     Dosage: 50 MG, BID
     Route: 048
  17. BROMAZEPAM [Concomitant]
     Dosage: 2 MG, UNK

REACTIONS (7)
  - EPILEPSY [None]
  - CARDIAC DISORDER [None]
  - CEREBROVASCULAR ACCIDENT [None]
  - OBSTRUCTION [None]
  - FEELING ABNORMAL [None]
  - HYPERTENSION [None]
  - DEPRESSED MOOD [None]
